FAERS Safety Report 6307240-5 (Version None)
Quarter: 2009Q3

REPORT INFORMATION
  Report Type: 
  Country: None (occurrence: None)
  Receive Date: 20090812
  Receipt Date: 20090812
  Transmission Date: 20100115
  Serious: Yes (Other)
  Sender: FDA-Public Use
  Company Number: None

PATIENT
  Sex: Male
  Weight: 44.5886 kg

DRUGS (1)
  1. AMPHETAMINE SALTS ER [Suspect]
     Indication: ATTENTION DEFICIT/HYPERACTIVITY DISORDER
     Dosage: 30 MG ONCE A DAY ORAL
     Route: 048
     Dates: start: 20090619

REACTIONS (1)
  - PRODUCT QUALITY ISSUE [None]
